FAERS Safety Report 9965476 (Version 1)
Quarter: 2014Q1

REPORT INFORMATION
  Report Type: Spontaneous
  Country: US (occurrence: US)
  Receive Date: 20140305
  Receipt Date: 20140305
  Transmission Date: 20141002
  Serious: Yes (Hospitalization, Other)
  Sender: FDA-Public Use
  Company Number: US-ELI_LILLY_AND_COMPANY-US201403000697

PATIENT
  Age: 71 Year
  Sex: Male

DRUGS (4)
  1. CIALIS [Suspect]
     Indication: BENIGN PROSTATIC HYPERPLASIA
     Dosage: 2.5 MG, QD
     Route: 065
     Dates: start: 201203, end: 201211
  2. CIALIS [Suspect]
     Indication: ERECTILE DYSFUNCTION
     Dosage: 5 MG, QD
     Route: 065
     Dates: start: 2013
  3. DIOVAN [Concomitant]
     Indication: HYPERTENSION
     Dosage: 1 DF, UNKNOWN
     Route: 065
  4. SIMVASTATIN [Concomitant]
     Dosage: 1 DF, UNKNOWN
     Route: 065

REACTIONS (4)
  - Postoperative thrombosis [Recovered/Resolved]
  - Pulmonary embolism [Recovered/Resolved]
  - Arthralgia [Recovered/Resolved]
  - Drug ineffective [Unknown]
